FAERS Safety Report 12212443 (Version 1)
Quarter: 2016Q1

REPORT INFORMATION
  Report Type: Spontaneous
  Country: FR (occurrence: FR)
  Receive Date: 20160326
  Receipt Date: 20160326
  Transmission Date: 20160526
  Serious: Yes (Hospitalization, Other)
  Sender: FDA-Public Use
  Company Number: FR-BRISTOL-MYERS SQUIBB COMPANY-BMS-2016-021596

PATIENT
  Age: 90 Year
  Sex: Male

DRUGS (2)
  1. EXELON [Concomitant]
     Active Substance: RIVASTIGMINE TARTRATE
     Indication: DEMENTIA ALZHEIMER^S TYPE
     Route: 062
  2. ELIQUIS [Suspect]
     Active Substance: APIXABAN
     Indication: CEREBROVASCULAR ACCIDENT PROPHYLAXIS
     Dosage: 5 MG, BID
     Route: 048
     Dates: start: 20160128, end: 20160318

REACTIONS (2)
  - Pyrexia [Not Recovered/Not Resolved]
  - General physical health deterioration [Not Recovered/Not Resolved]
